FAERS Safety Report 8888719 (Version 1)
Quarter: 2012Q4

REPORT INFORMATION
  Report Type: 
  Country: RU (occurrence: RU)
  Receive Date: 20121106
  Receipt Date: 20121106
  Transmission Date: 20130627
  Serious: Yes (Other)
  Sender: FDA-Public Use
  Company Number: RU-VIIV HEALTHCARE LIMITED-B0841639A

PATIENT
  Age: 36 Year
  Sex: Female

DRUGS (3)
  1. COMBIVIR [Suspect]
     Indication: HIV INFECTION
     Dosage: 2TAB Per day
     Route: 048
     Dates: start: 2010, end: 201109
  2. KIVEXA [Suspect]
     Indication: PRODUCT USED FOR UNKNOWN INDICATION
     Route: 065
     Dates: start: 201109, end: 201207
  3. KALETRA [Suspect]
     Indication: HIV INFECTION
     Dosage: 4TAB Per day
     Route: 048
     Dates: start: 2010, end: 201207

REACTIONS (7)
  - White blood cell count decreased [Recovered/Resolved]
  - Mitochondrial toxicity [Recovered/Resolved]
  - Anaemia [Unknown]
  - Osteoporosis [Unknown]
  - Myalgia [Unknown]
  - Dizziness [Unknown]
  - Asthenia [Unknown]
